FAERS Safety Report 4384384-9 (Version None)
Quarter: 2004Q2

REPORT INFORMATION
  Report Type: 
  Country: None (occurrence: None)
  Receive Date: 20040621
  Receipt Date: 20040607
  Transmission Date: 20050107
  Serious: Yes (Hospitalization)
  Sender: FDA-Public Use
  Company Number: 2004218086FR

PATIENT
  Age: 56 Year
  Sex: Male
  Weight: 54 kg

DRUGS (2)
  1. ADRIBLASTINE (DOXORUBICIN HYDROCHLORIDE) [Suspect]
     Dosage: 10 MG IV
     Route: 042
  2. HOLOXAN (IFOSFAMIDE) [Suspect]
     Dosage: 500 MG IV
     Route: 042

REACTIONS (2)
  - BONE MARROW DEPRESSION [None]
  - RENAL FAILURE CHRONIC [None]
